FAERS Safety Report 21202322 (Version 1)
Quarter: 2022Q3

REPORT INFORMATION
  Report Type: Spontaneous
  Country: US (occurrence: None)
  Receive Date: 20220811
  Receipt Date: 20220811
  Transmission Date: 20221026
  Serious: Yes (Life-Threatening, Hospitalization, Disabling, Other)
  Sender: FDA-Public Use
  Company Number: None

PATIENT
  Age: 25 Year
  Sex: Female
  Weight: 78.3 kg

DRUGS (2)
  1. MIRENA [Suspect]
     Active Substance: LEVONORGESTREL
     Indication: Contraception
     Dosage: OTHER QUANTITY : 1 INJECTION(S);?OTHER FREQUENCY : EVERY 5 YEARS;?
     Route: 067
  2. MIRENA [Suspect]
     Active Substance: LEVONORGESTREL
     Indication: Muscle spasms

REACTIONS (5)
  - Embedded device [None]
  - Infertility female [None]
  - Sepsis [None]
  - Impaired work ability [None]
  - Fallopian tube operation [None]

NARRATIVE: CASE EVENT DATE: 20160630
